FAERS Safety Report 12597285 (Version 1)
Quarter: 2016Q3

REPORT INFORMATION
  Report Type: Spontaneous
  Country: US (occurrence: None)
  Receive Date: 20160726
  Receipt Date: 20160726
  Transmission Date: 20161109
  Serious: Yes (Hospitalization)
  Sender: FDA-Public Use
  Company Number: None

PATIENT
  Age: 60 Year
  Sex: Male
  Weight: 99.1 kg

DRUGS (3)
  1. DACLATASVIR 60MG SMS [Suspect]
     Active Substance: DACLATASVIR
     Indication: HEPATITIS C
     Route: 048
     Dates: start: 20160105
  2. WELLBUTRIN [Concomitant]
     Active Substance: BUPROPION HYDROCHLORIDE
  3. SOFOSBUVIR 400MG GILEAD [Suspect]
     Active Substance: SOFOSBUVIR
     Indication: HEPATITIS C
     Route: 048
     Dates: start: 20160105

REACTIONS (6)
  - Nausea [None]
  - Dizziness [None]
  - Hyperhidrosis [None]
  - Angina pectoris [None]
  - Vomiting [None]
  - Anaemia [None]

NARRATIVE: CASE EVENT DATE: 20160216
